FAERS Safety Report 5927250-7 (Version None)
Quarter: 2008Q4

REPORT INFORMATION
  Report Type: 
  Country: None (occurrence: None)
  Receive Date: 20081017
  Receipt Date: 20081002
  Transmission Date: 20090506
  Serious: Yes (Other)
  Sender: FDA-Public Use
  Company Number: DSA_32509_2008

PATIENT
  Sex: Male

DRUGS (3)
  1. ENALAPRIL MALEATE [Suspect]
     Indication: HYPERTENSION
     Dosage: 10 MG  BID ORAL
     Route: 048
     Dates: start: 20080301, end: 20080706
  2. ESTRASMUSTINE [Concomitant]
  3. AMLODIPINE BESYLATE [Concomitant]

REACTIONS (4)
  - LARYNGEAL OEDEMA [None]
  - OEDEMA MOUTH [None]
  - SENSATION OF FOREIGN BODY [None]
  - TONGUE OEDEMA [None]
